FAERS Safety Report 24744056 (Version 2)
Quarter: 2025Q1

REPORT INFORMATION
  Report Type: Spontaneous
  Country: PT (occurrence: PT)
  Receive Date: 20241217
  Receipt Date: 20250109
  Transmission Date: 20250409
  Serious: Yes (Other)
  Sender: FRESENIUS KABI
  Company Number: PT-009507513-2412PRT000408

PATIENT
  Age: 52 Year
  Sex: Female

DRUGS (13)
  1. CARBOPLATIN [Suspect]
     Active Substance: CARBOPLATIN
     Indication: Triple negative breast cancer
  2. CARBOPLATIN [Suspect]
     Active Substance: CARBOPLATIN
  3. PACLITAXEL [Suspect]
     Active Substance: PACLITAXEL
     Indication: Triple negative breast cancer
  4. PACLITAXEL [Suspect]
     Active Substance: PACLITAXEL
  5. PEMBROLIZUMAB [Suspect]
     Active Substance: PEMBROLIZUMAB
     Indication: Triple negative breast cancer
     Dates: start: 20240409, end: 20240409
  6. PEMBROLIZUMAB [Suspect]
     Active Substance: PEMBROLIZUMAB
     Dates: start: 20240430, end: 20240430
  7. PEMBROLIZUMAB [Suspect]
     Active Substance: PEMBROLIZUMAB
     Dates: start: 20240611, end: 20240611
  8. PEMBROLIZUMAB [Suspect]
     Active Substance: PEMBROLIZUMAB
     Dates: start: 20240716, end: 20240716
  9. PEMBROLIZUMAB [Suspect]
     Active Substance: PEMBROLIZUMAB
     Dates: start: 20240806, end: 20240806
  10. PEMBROLIZUMAB [Suspect]
     Active Substance: PEMBROLIZUMAB
     Dates: start: 20240827, end: 20240827
  11. PEMBROLIZUMAB [Suspect]
     Active Substance: PEMBROLIZUMAB
  12. PEMBROLIZUMAB [Suspect]
     Active Substance: PEMBROLIZUMAB
  13. PEMBROLIZUMAB [Suspect]
     Active Substance: PEMBROLIZUMAB
     Dates: end: 20240319

REACTIONS (13)
  - Febrile neutropenia [Recovered/Resolved]
  - Immune-mediated hepatitis [Recovered/Resolved]
  - Fatigue [Unknown]
  - Nausea [Unknown]
  - Decreased appetite [Unknown]
  - Arthralgia [Unknown]
  - Off label use [Unknown]
  - Rosacea [Unknown]
  - Dermatitis [Recovered/Resolved]
  - Inappropriate schedule of product administration [Unknown]
  - Pyrexia [Unknown]
  - Cough [Unknown]
  - Inappropriate schedule of product administration [Unknown]

NARRATIVE: CASE EVENT DATE: 20240101
